FAERS Safety Report 20022262 (Version 5)
Quarter: 2022Q1

REPORT INFORMATION
  Report Type: Spontaneous
  Country: US (occurrence: US)
  Receive Date: 20211102
  Receipt Date: 20220202
  Transmission Date: 20220423
  Serious: No
  Sender: FDA-Public Use
  Company Number: US-NOVARTISTESTPH-NVSC2021US249790

PATIENT
  Sex: Male

DRUGS (2)
  1. MEKINIST [Suspect]
     Active Substance: TRAMETINIB DIMETHYL SULFOXIDE
     Indication: Lung neoplasm malignant
     Dosage: 2 MG, QD
     Route: 065
     Dates: start: 202110
  2. TAFINLAR [Suspect]
     Active Substance: DABRAFENIB MESYLATE
     Indication: Lung neoplasm malignant
     Dosage: 150 MG, BID
     Route: 048
     Dates: start: 202110

REACTIONS (9)
  - Abdominal discomfort [Unknown]
  - Flatulence [Unknown]
  - Ear discomfort [Unknown]
  - Constipation [Unknown]
  - Abdominal pain upper [Unknown]
  - Rash [Unknown]
  - Ill-defined disorder [Unknown]
  - Accidental overdose [Unknown]
  - Extra dose administered [Unknown]
